FAERS Safety Report 9308262 (Version 1)
Quarter: 2013Q2

REPORT INFORMATION
  Report Type: Spontaneous
  Country: US (occurrence: US)
  Receive Date: 20130524
  Receipt Date: 20130524
  Transmission Date: 20140414
  Serious: Yes (Hospitalization)
  Sender: FDA-Public Use
  Company Number: US-BAYER-2013-064847

PATIENT
  Age: 48 Year
  Sex: Male

DRUGS (1)
  1. MAGNEVIST [Suspect]
     Indication: NUCLEAR MAGNETIC RESONANCE IMAGING
     Dosage: 19 ML, ONCE
     Route: 042
     Dates: start: 20130516, end: 20130516

REACTIONS (7)
  - Anaphylactic reaction [None]
  - Nausea [None]
  - Vomiting [None]
  - Dyspnoea [None]
  - Eyelid oedema [None]
  - Oedema mouth [None]
  - Pharyngeal oedema [None]
